FAERS Safety Report 13585772 (Version 3)
Quarter: 2017Q4

REPORT INFORMATION
  Report Type: Spontaneous
  Country: DE (occurrence: DE)
  Receive Date: 20170526
  Receipt Date: 20171108
  Transmission Date: 20180320
  Serious: Yes (Life-Threatening, Hospitalization, Other)
  Sender: FDA-Public Use
  Company Number: DE-PFIZER INC-2017229503

PATIENT
  Age: 59 Year
  Sex: Male

DRUGS (4)
  1. CISPLATIN. [Concomitant]
     Active Substance: CISPLATIN
     Indication: BLADDER CANCER
     Dosage: UNK
  2. VINBLASTINE [Concomitant]
     Active Substance: VINBLASTINE
     Indication: BLADDER CANCER
     Dosage: UNK
  3. DOXORUBICIN HCL [Suspect]
     Active Substance: DOXORUBICIN HYDROCHLORIDE
     Indication: BLADDER CANCER
     Dosage: UNK
  4. METHOTREXATE. [Concomitant]
     Active Substance: METHOTREXATE
     Indication: BLADDER CANCER
     Dosage: UNK

REACTIONS (7)
  - Ventricular fibrillation [Recovered/Resolved]
  - Chest pain [Recovered/Resolved]
  - Myocardial necrosis marker increased [Recovered/Resolved]
  - Cardiotoxicity [Unknown]
  - Coronary artery disease [Unknown]
  - Ventricular dysfunction [Unknown]
  - Ejection fraction decreased [Unknown]
